FAERS Safety Report 8761466 (Version 4)
Quarter: 2012Q4

REPORT INFORMATION
  Report Type: 
  Country: US (occurrence: US)
  Receive Date: 20120831
  Receipt Date: 20121105
  Transmission Date: 20130627
  Serious: No
  Sender: FDA-Public Use
  Company Number: US-BIOGENIDEC-2012BI033777

PATIENT
  Age: 40 None
  Sex: Male

DRUGS (4)
  1. TYSABRI [Suspect]
     Indication: MULTIPLE SCLEROSIS
     Route: 042
     Dates: start: 20110210, end: 20110308
  2. TYSABRI [Suspect]
     Indication: MULTIPLE SCLEROSIS
     Route: 042
     Dates: start: 20120723
  3. AVONEX [Concomitant]
     Indication: MULTIPLE SCLEROSIS
     Route: 030
     Dates: start: 20110524
  4. AVONEX [Concomitant]
     Indication: MULTIPLE SCLEROSIS
     Route: 030
     Dates: start: 20110713

REACTIONS (11)
  - Anxiety [Unknown]
  - Infusion related reaction [Recovered/Resolved]
  - Panic attack [Recovered/Resolved]
  - Loss of consciousness [Recovered/Resolved]
  - Hypoaesthesia [Recovered/Resolved]
  - Vision blurred [Recovered/Resolved]
  - Vascular procedure complication [Recovered/Resolved]
  - Migraine [Recovered/Resolved]
  - Chills [Recovered/Resolved]
  - Dyspnoea [Recovered/Resolved]
  - Nausea [Recovered/Resolved]
